FAERS Safety Report 5383007-X (Version None)
Quarter: 2007Q3

REPORT INFORMATION
  Report Type: 
  Country: None (occurrence: None)
  Receive Date: 20070705
  Receipt Date: 20070629
  Transmission Date: 20080115
  Serious: Yes (Other)
  Sender: FDA-Public Use
  Company Number: E3810-00911-SPO-AU

PATIENT
  Sex: Male

DRUGS (8)
  1. RABEPRAZOLE SODIUM [Suspect]
     Dosage: ORAL
     Route: 048
  2. SIMVASTATIN [Concomitant]
  3. FUROSEMIDE [Concomitant]
  4. IRBISARTAN [Concomitant]
  5. OLANZAPINE [Concomitant]
  6. MIRTAZAPINE [Concomitant]
  7. OXAZEPAM [Concomitant]
  8. ATORVASTATIN CALCIUM [Concomitant]

REACTIONS (3)
  - COGNITIVE DISORDER [None]
  - DEPRESSION [None]
  - SUICIDAL IDEATION [None]
